FAERS Safety Report 9938298 (Version 1)
Quarter: 2014Q1

REPORT INFORMATION
  Report Type: Report from Study
  Country: US (occurrence: US)
  Receive Date: 20140303
  Receipt Date: 20140303
  Transmission Date: 20141002
  Serious: No
  Sender: FDA-Public Use
  Company Number: US-ABBVIE-13P-163-1031623-00

PATIENT
  Age: 57 Year
  Sex: Female

DRUGS (7)
  1. HUMIRA [Suspect]
     Indication: PSORIASIS
     Dates: start: 20121101, end: 20121101
  2. HUMIRA [Suspect]
     Dates: start: 20121108, end: 20121108
  3. HUMIRA [Suspect]
  4. LISINOPRIL [Concomitant]
     Indication: BLOOD PRESSURE
     Dosage: 20MG DAILY
  5. MULTIVITAMIN [Concomitant]
     Indication: PRODUCT USED FOR UNKNOWN INDICATION
     Dosage: DAILY
  6. CALCIPOTRIENE [Concomitant]
     Indication: PRODUCT USED FOR UNKNOWN INDICATION
  7. CLOBETASOL [Concomitant]
     Indication: PSORIASIS
     Route: 061

REACTIONS (8)
  - Dizziness [Recovering/Resolving]
  - Pyrexia [Recovering/Resolving]
  - Hyperhidrosis [Recovering/Resolving]
  - Nasopharyngitis [Recovering/Resolving]
  - Nasal congestion [Recovering/Resolving]
  - Cough [Recovering/Resolving]
  - Abdominal discomfort [Recovering/Resolving]
  - Psoriasis [Recovering/Resolving]
